FAERS Safety Report 18200467 (Version 1)
Quarter: 2020Q3

REPORT INFORMATION
  Report Type: Report from Study
  Country: US (occurrence: US)
  Receive Date: 20200826
  Receipt Date: 20200826
  Transmission Date: 20201103
  Serious: Yes (Hospitalization, Disabling, Other)
  Sender: FDA-Public Use
  Company Number: US-SA-2018SA197793

PATIENT

DRUGS (2)
  1. ALEMTUZUMAB [Suspect]
     Active Substance: ALEMTUZUMAB
     Dosage: 12 MG, QD
     Route: 041
     Dates: start: 20160411, end: 20160415
  2. ALEMTUZUMAB [Suspect]
     Active Substance: ALEMTUZUMAB
     Indication: MULTIPLE SCLEROSIS
     Dosage: 12 MG, QD
     Route: 041
     Dates: start: 20170417, end: 20170419

REACTIONS (13)
  - Thyrotoxic crisis [Recovering/Resolving]
  - Multiple sclerosis relapse [Recovering/Resolving]
  - Hyperthyroidism [Recovered/Resolved]
  - Thrombosis [Recovered/Resolved]
  - Peripheral swelling [Recovered/Resolved]
  - Mobility decreased [Recovering/Resolving]
  - Drug monitoring procedure not performed [Unknown]
  - Gait inability [Recovering/Resolving]
  - Condition aggravated [Recovering/Resolving]
  - Autoimmune thyroiditis [Unknown]
  - Heart rate increased [Recovered/Resolved]
  - Hypothyroidism [Recovering/Resolving]
  - Hypotension [Recovered/Resolved]

NARRATIVE: CASE EVENT DATE: 20180628
